FAERS Safety Report 7283877-4 (Version None)
Quarter: 2011Q1

REPORT INFORMATION
  Report Type: 
  Country: None (occurrence: None)
  Receive Date: 20110209
  Receipt Date: 20110207
  Transmission Date: 20110831
  Serious: Yes (Hospitalization, Other)
  Sender: FDA-Public Use
  Company Number: US-PFIZER INC-2010121897

PATIENT
  Sex: Female
  Weight: 77 kg

DRUGS (15)
  1. MAGNESIUM OXIDE [Concomitant]
     Dosage: 1600 MG, 2X/DAY
  2. ACETYLSALICYLIC ACID [Concomitant]
     Dosage: UNK
  3. NICOTROL [Suspect]
     Dosage: UNK
     Dates: start: 20100901, end: 20100101
  4. SPIRONOLACTONE W/ HYDROCHLOROTHIAZIDE [Concomitant]
     Dosage: 25 MG, UNK
  5. CHANTIX [Suspect]
     Indication: SMOKING CESSATION THERAPY
     Dosage: UNK
  6. HYDROCHLOROTHIAZIDE [Concomitant]
     Dosage: UNK
  7. ALBUTEROL SULFATE [Concomitant]
     Indication: EMPHYSEMA
     Dosage: 3.0 MG
  8. NICOTROL [Suspect]
     Indication: SMOKING CESSATION THERAPY
     Dosage: 10 MG, UNK
     Dates: start: 20100601, end: 20100601
  9. MAGNESIUM [Concomitant]
     Dosage: UNK
  10. NICOTROL [Suspect]
     Dosage: 10 MG, AS NEEDED
     Dates: start: 20101129
  11. IPRATROPIUM BROMIDE [Concomitant]
     Indication: EMPHYSEMA
     Dosage: 0.5 MG
  12. GLIPIZIDE [Concomitant]
     Indication: DIABETES MELLITUS
     Dosage: UNK
  13. INSULIN [Concomitant]
     Indication: DIABETES MELLITUS
     Dosage: UNK
  14. ADVAIR [Concomitant]
     Indication: EMPHYSEMA
     Dosage: 250/50 MCG
  15. SPIRIVA [Concomitant]
     Indication: EMPHYSEMA
     Dosage: UNK

REACTIONS (15)
  - APPENDICITIS [None]
  - STRESS [None]
  - NERVOUSNESS [None]
  - WEIGHT FLUCTUATION [None]
  - DRY MOUTH [None]
  - MUSCULOSKELETAL PAIN [None]
  - BLOOD MAGNESIUM DECREASED [None]
  - IMPAIRED WORK ABILITY [None]
  - HIGH DENSITY LIPOPROTEIN DECREASED [None]
  - BLOOD TRIGLYCERIDES INCREASED [None]
  - DYSGEUSIA [None]
  - ARTHRALGIA [None]
  - HYPOAESTHESIA [None]
  - RENAL DISORDER [None]
  - DRUG INEFFECTIVE [None]
